FAERS Safety Report 10382260 (Version 1)
Quarter: 2014Q3

REPORT INFORMATION
  Report Type: Spontaneous
  Country: GB (occurrence: None)
  Receive Date: 20140811
  Receipt Date: 20140811
  Transmission Date: 20150326
  Serious: Yes (Other)
  Sender: FDA-Public Use
  Company Number: AUR-APL-2014-08280

PATIENT
  Age: 20 Year
  Sex: Female
  Weight: 50.8 kg

DRUGS (2)
  1. CITALOPRAM [Suspect]
     Active Substance: CITALOPRAM HYDROBROMIDE
     Indication: MAJOR DEPRESSION
     Route: 048
     Dates: start: 20140713, end: 20140714
  2. PROPRANOLOL HYDROCHLORIDE. [Concomitant]
     Active Substance: PROPRANOLOL HYDROCHLORIDE

REACTIONS (10)
  - Nausea [None]
  - Anxiety [None]
  - Middle insomnia [None]
  - Dizziness [None]
  - Sedation [None]
  - Malaise [None]
  - Confusional state [None]
  - Mydriasis [None]
  - Cold sweat [None]
  - Feeling hot [None]

NARRATIVE: CASE EVENT DATE: 20140713
